FAERS Safety Report 6976311-2 (Version None)
Quarter: 2010Q3

REPORT INFORMATION
  Report Type: 
  Country: None (occurrence: None)
  Receive Date: 20100910
  Receipt Date: 20090424
  Transmission Date: 20110219
  Serious: No
  Sender: FDA-Public Use
  Company Number: US-WYE-H09116809

PATIENT
  Sex: Male
  Weight: 101.7 kg

DRUGS (2)
  1. PRISTIQ [Suspect]
     Indication: DEPRESSION
     Route: 048
     Dates: start: 20090101
  2. LISINOPRIL [Concomitant]

REACTIONS (1)
  - WEIGHT INCREASED [None]
